FAERS Safety Report 7071433-2 (Version None)
Quarter: 2010Q4

REPORT INFORMATION
  Report Type: 
  Country: None (occurrence: None)
  Receive Date: 20101029
  Receipt Date: 20100719
  Transmission Date: 20110411
  Serious: No
  Sender: FDA-Public Use
  Company Number: A0804859A

PATIENT
  Age: 23 Year
  Sex: Female

DRUGS (5)
  1. ADVAIR DISKUS 100/50 [Suspect]
     Indication: ASTHMA
     Dosage: 1PUFF AS REQUIRED
     Route: 055
     Dates: start: 20090824
  2. SINGULAIR [Concomitant]
  3. ABILIFY [Concomitant]
  4. RITALIN [Concomitant]
  5. CELEXA [Concomitant]

REACTIONS (4)
  - HYPERSENSITIVITY [None]
  - ORAL INFECTION [None]
  - PHARYNGITIS [None]
  - RASH PUSTULAR [None]
